FAERS Safety Report 16900215 (Version 1)
Quarter: 2019Q4

REPORT INFORMATION
  Report Type: Spontaneous
  Country: US (occurrence: US)
  Receive Date: 20190816
  Receipt Date: 20190816
  Transmission Date: 20200122
  Serious: Yes (Hospitalization)
  Sender: FDA-Public Use
  Company Number: None

PATIENT
  Age: 7 Year
  Sex: Female
  Weight: 26.1 kg

DRUGS (6)
  1. CARBOPLATIN. [Suspect]
     Active Substance: CARBOPLATIN
     Dates: end: 20190611
  2. CYCLOSPORINE. [Suspect]
     Active Substance: CYCLOSPORINE
  3. ZINECARD [Suspect]
     Active Substance: DEXRAZOXANE HYDROCHLORIDE
     Dates: end: 20190611
  4. VALGANCICLOVIR. [Concomitant]
     Active Substance: VALGANCICLOVIR
  5. DOXORUBICIN HYDROCHLORIDE. [Suspect]
     Active Substance: DOXORUBICIN HYDROCHLORIDE
     Dates: end: 20190611
  6. BACTRIM [Concomitant]
     Active Substance: SULFAMETHOXAZOLE\TRIMETHOPRIM

REACTIONS (17)
  - Human herpes virus 6 serology positive [None]
  - Cold agglutinins positive [None]
  - Constipation [None]
  - Rhinorrhoea [None]
  - Headache [None]
  - Febrile neutropenia [None]
  - Hypophagia [None]
  - Complications of transplanted liver [None]
  - Oropharyngeal pain [None]
  - Liver transplant [None]
  - Bile duct obstruction [None]
  - Haemolytic anaemia [None]
  - Decreased appetite [None]
  - Thrombocytopenia [None]
  - Clostridium difficile colitis [None]
  - Hypertension [None]
  - Abdominal pain [None]

NARRATIVE: CASE EVENT DATE: 20190809
